FAERS Safety Report 9342610 (Version 1)
Quarter: 2013Q2

REPORT INFORMATION
  Report Type: Spontaneous
  Country: US (occurrence: US)
  Receive Date: 20130611
  Receipt Date: 20130611
  Transmission Date: 20140414
  Serious: No
  Sender: FDA-Public Use
  Company Number: US-PFIZER INC-2013176069

PATIENT
  Age: 31 Year
  Sex: Female
  Weight: 68.03 kg

DRUGS (2)
  1. EFFEXOR [Suspect]
     Indication: ANXIETY
     Dosage: UNK, 2X/DAY
     Route: 048
     Dates: start: 201305, end: 201305
  2. ALBUTEROL [Concomitant]
     Dosage: UNK

REACTIONS (3)
  - Aggression [Unknown]
  - Anger [Unknown]
  - Feeling abnormal [Unknown]
